FAERS Safety Report 8779097 (Version 1)
Quarter: 2012Q4

REPORT INFORMATION
  Report Type: Report from Study
  Country: AU (occurrence: AU)
  Receive Date: 20120912
  Receipt Date: 20120912
  Transmission Date: 20130627
  Serious: Yes (Hospitalization)
  Sender: FDA-Public Use
  Company Number: AU-BIOGENIDEC-2012BI036427

PATIENT
  Age: 29 Year
  Sex: Male

DRUGS (2)
  1. TYSABRI [Suspect]
     Indication: MULTIPLE SCLEROSIS
     Route: 042
     Dates: start: 20100130
  2. FINGOLIMOD [Concomitant]
     Indication: DRUG THERAPY
     Route: 048
     Dates: start: 20120819, end: 20120824

REACTIONS (1)
  - Pancreatitis [Recovered/Resolved]
